FAERS Safety Report 25252390 (Version 1)
Quarter: 2025Q2

REPORT INFORMATION
  Report Type: Spontaneous
  Country: ES (occurrence: ES)
  Receive Date: 20250429
  Receipt Date: 20250429
  Transmission Date: 20250717
  Serious: Yes (Other)
  Sender: ABBVIE
  Company Number: None

PATIENT
  Age: 66 Year
  Sex: Female
  Weight: 73 kg

DRUGS (3)
  1. IMBRUVICA [Suspect]
     Active Substance: IBRUTINIB
     Indication: Lymphocytic leukaemia
     Dosage: 30 TABLETS
     Route: 048
     Dates: start: 20240415
  2. VENETOCLAX [Suspect]
     Active Substance: VENETOCLAX
     Indication: Lymphocytic leukaemia
     Dosage: 112 TABLETS; FORM STRENGTH: 100 MG; DISCONTINUED IN JUL 2024
     Route: 050
     Dates: start: 20240707
  3. VENETOCLAX [Suspect]
     Active Substance: VENETOCLAX
     Indication: Lymphocytic leukaemia
     Dosage: 112 TABLETS; FORM STRENGTH: 100 MG; START ON JUL 2024 SCHEDULE UNTIL REACHING 400 MG PER DAY IN A...
     Route: 050
     Dates: start: 20240724

REACTIONS (1)
  - Blindness [Recovering/Resolving]

NARRATIVE: CASE EVENT DATE: 20240901
